FAERS Safety Report 10787417 (Version 2)
Quarter: 2015Q2

REPORT INFORMATION
  Report Type: Report from Study
  Country: GB (occurrence: GB)
  Receive Date: 20150212
  Receipt Date: 20150501
  Transmission Date: 20150821
  Serious: Yes (Hospitalization)
  Sender: FDA-Public Use
  Company Number: GB-ROCHE-1536845

PATIENT
  Sex: Female
  Weight: 85 kg

DRUGS (10)
  1. PARACETAMOL [Concomitant]
     Active Substance: ACETAMINOPHEN
     Dosage: DRUG TO BE TAKEN FOR 28 DAYS PRN
     Route: 048
  2. TRAMADOL [Concomitant]
     Active Substance: TRAMADOL
     Dosage: 30 TABLETS OF 50 MG TO BE SUPPLIED (DATE:10/JUN/2014)
     Route: 048
  3. RITUXIMAB [Suspect]
     Active Substance: RITUXIMAB
     Indication: RHEUMATOID ARTHRITIS
     Dosage: LAST DOSE PRIOR TO SAE ON 07/APR/2014
     Route: 042
     Dates: start: 20130819
  4. RAMIPRIL. [Concomitant]
     Active Substance: RAMIPRIL
     Indication: HYPOTENSION
     Dosage: DRUG TO BE TAKEN FOR 28 DAYS
     Route: 048
  5. PREDNISOLONE. [Concomitant]
     Active Substance: PREDNISOLONE
     Dosage: DRUG TO BE TAKEN FOR 28 DAYS EVERY MORNING
     Route: 048
  6. IBUPROFEN. [Concomitant]
     Active Substance: IBUPROFEN
     Indication: PERICARDITIS
     Route: 048
  7. PREGABALIN. [Concomitant]
     Active Substance: PREGABALIN
     Dosage: DRUG TO BE TAKEN FOR 28 DAYS
     Route: 048
  8. PANTOPRAZOLE [Concomitant]
     Active Substance: PANTOPRAZOLE SODIUM
     Dosage: DRUG TO BE TAKEN FOR 28 DAYS EVERY MORNING
     Route: 048
  9. ADCAL - D3 [Concomitant]
     Dosage: DRUG TO BE TAKEN FOR 28 DAYS
     Route: 048
  10. FUROSEMIDE. [Concomitant]
     Active Substance: FUROSEMIDE
     Dosage: DRUG TO BE TAKEN FOR 28 DAYS EVERY MORNING
     Route: 048

REACTIONS (1)
  - Pericardial effusion [Unknown]

NARRATIVE: CASE EVENT DATE: 2014
